FAERS Safety Report 20231107 (Version 1)
Quarter: 2021Q4

REPORT INFORMATION
  Report Type: Spontaneous
  Country: IE (occurrence: IE)
  Receive Date: 20211227
  Receipt Date: 20211227
  Transmission Date: 20220304
  Serious: Yes (Hospitalization)
  Sender: FDA-Public Use
  Company Number: IE-PFIZER INC-202101792537

PATIENT
  Age: 27 Year
  Sex: Female

DRUGS (1)
  1. MYLOTARG [Suspect]
     Active Substance: GEMTUZUMAB OZOGAMICIN
     Indication: Acute myeloid leukaemia
     Dosage: UNK, SINGLE

REACTIONS (3)
  - Venoocclusive liver disease [Recovered/Resolved]
  - Hepatic pain [Recovered/Resolved]
  - Renal impairment [Recovered/Resolved]
